FAERS Safety Report 17605908 (Version 1)
Quarter: 2020Q1

REPORT INFORMATION
  Report Type: Spontaneous
  Country: SE (occurrence: SE)
  Receive Date: 20200331
  Receipt Date: 20200331
  Transmission Date: 20200409
  Serious: Yes (Death)
  Sender: FDA-Public Use
  Company Number: SE-ASTRAZENECA-2020SE43524

PATIENT
  Age: 74 Year
  Sex: Female

DRUGS (6)
  1. TROMBYL [Suspect]
     Active Substance: ASPIRIN
     Route: 065
     Dates: start: 20110517
  2. BRILIQUE [Suspect]
     Active Substance: TICAGRELOR
     Route: 048
     Dates: start: 20190903
  3. ATORVASTATIN ACCORD [Concomitant]
     Active Substance: ATORVASTATIN
     Dates: start: 20190903
  4. GLYTRIN [Concomitant]
     Dosage: 0.4MG INTERMITTENT
     Route: 060
     Dates: start: 20190903
  5. METOPROLOL ORION [Concomitant]
     Active Substance: METOPROLOL
     Dates: start: 20190903
  6. ENALAPRIL [Concomitant]
     Active Substance: ENALAPRIL
     Dates: start: 20190903

REACTIONS (1)
  - Cerebral haemorrhage [Fatal]

NARRATIVE: CASE EVENT DATE: 202003
